FAERS Safety Report 7770661-8 (Version None)
Quarter: 2011Q3

REPORT INFORMATION
  Report Type: 
  Country: None (occurrence: None)
  Receive Date: 20110922
  Receipt Date: 20110906
  Transmission Date: 20111222
  Serious: No
  Sender: FDA-Public Use
  Company Number: US-B.I. PHARMACEUTICALS,INC./RIDGEFIELD-2011-BP-21534BP

PATIENT
  Sex: Female

DRUGS (9)
  1. BYSTOLIC [Concomitant]
     Indication: HYPERTENSION
     Dosage: 20 MG
     Route: 048
  2. ESTRADIOL [Concomitant]
     Dosage: 0.5 MG
     Route: 048
  3. OMEPRAZOLE [Concomitant]
     Indication: GASTROOESOPHAGEAL REFLUX DISEASE
     Dosage: 20 MG
     Route: 048
  4. PRADAXA [Suspect]
     Indication: ATRIAL FIBRILLATION
     Dosage: 300 MG
     Route: 048
     Dates: start: 20110816
  5. BUPROPION HCL [Concomitant]
     Dosage: 300 MG
     Route: 048
  6. PROGESTERONE [Concomitant]
     Dosage: 100 MG
     Route: 048
  7. CITALOPRAM HYDROBROMIDE [Concomitant]
     Dosage: 20 MG
     Route: 048
  8. LAMOTRIGINE [Concomitant]
     Dosage: 50 MG
     Route: 048
  9. TERAZOSIN HCL [Concomitant]
     Indication: HYPERTENSION
     Dosage: 20 MG
     Route: 048

REACTIONS (4)
  - VAGINAL HAEMORRHAGE [None]
  - SWELLING FACE [None]
  - OEDEMA PERIPHERAL [None]
  - CHEST PAIN [None]
